FAERS Safety Report 4399832-8 (Version None)
Quarter: 2004Q3

REPORT INFORMATION
  Report Type: 
  Country: None (occurrence: None)
  Receive Date: 20040714
  Receipt Date: 20040630
  Transmission Date: 20050211
  Serious: Yes (Other)
  Sender: FDA-Public Use
  Company Number: US_0407103971

PATIENT
  Age: 25 Year
  Sex: Male

DRUGS (1)
  1. SOMATROPIN [Suspect]
     Indication: DELAYED PUBERTY

REACTIONS (5)
  - AZOOSPERMIA [None]
  - DELAYED PUBERTY [None]
  - PRIMARY HYPOGONADISM [None]
  - REPRODUCTIVE TRACT HYPOPLASIA, MALE [None]
  - TESTICULAR DISORDER [None]
